FAERS Safety Report 5736178-7 (Version None)
Quarter: 2008Q2

REPORT INFORMATION
  Report Type: 
  Country: None (occurrence: None)
  Receive Date: 20080509
  Receipt Date: 20080509
  Transmission Date: 20081010
  Serious: Yes (Hospitalization)
  Sender: FDA-Public Use
  Company Number: None

PATIENT
  Age: 62 Year
  Sex: Male
  Weight: 86 kg

DRUGS (4)
  1. BEVACIZUMAB [Suspect]
     Indication: ANAPLASTIC ASTROCYTOMA
     Dosage: 10MG/KG IV QOW; 1 CYCLE 1 START
     Dates: start: 20080324
  2. ERLOTINIB [Suspect]
     Indication: ANAPLASTIC ASTROCYTOMA
     Dosage: 200MG PO QD; CYCLE 1 START
     Route: 048
     Dates: start: 20080324
  3. KEPPRA [Concomitant]
  4. ZOFRAN [Concomitant]

REACTIONS (3)
  - FAECES DISCOLOURED [None]
  - HYPOTENSION [None]
  - ULCER HAEMORRHAGE [None]
